FAERS Safety Report 18570582 (Version 1)
Quarter: 2020Q4

REPORT INFORMATION
  Report Type: Spontaneous
  Country: US (occurrence: US)
  Receive Date: 20201202
  Receipt Date: 20201202
  Transmission Date: 20210114
  Serious: No
  Sender: FDA-Public Use
  Company Number: US-TAKEDA-2020TUS052746

PATIENT
  Sex: Female

DRUGS (2)
  1. HUMIRA [Suspect]
     Active Substance: ADALIMUMAB
     Indication: COLITIS ULCERATIVE
     Dosage: 40 MILLIGRAM
     Route: 058
     Dates: start: 20200803
  2. PENTASA [Suspect]
     Active Substance: MESALAMINE
     Indication: COLITIS ULCERATIVE
     Dosage: 40 MILLIGRAM, SINGLE
     Route: 058
     Dates: start: 20200803

REACTIONS (20)
  - Limb discomfort [Unknown]
  - Oropharyngeal discomfort [Unknown]
  - Pain [Not Recovered/Not Resolved]
  - Throat tightness [Unknown]
  - Hypoaesthesia oral [Unknown]
  - Faeces soft [Unknown]
  - Lip swelling [Unknown]
  - Gastrooesophageal reflux disease [Unknown]
  - Pain in extremity [Unknown]
  - Pharyngeal swelling [Recovered/Resolved]
  - Abdominal pain upper [Recovered/Resolved]
  - Flatulence [Unknown]
  - Dry mouth [Unknown]
  - Ear swelling [Recovered/Resolved]
  - Dyspnoea [Recovered/Resolved]
  - Headache [Recovered/Resolved]
  - Fatigue [Recovered/Resolved]
  - Colitis [Not Recovered/Not Resolved]
  - Inflammation [Unknown]
  - Abdominal distension [Unknown]

NARRATIVE: CASE EVENT DATE: 2020
